FAERS Safety Report 16514287 (Version 1)
Quarter: 2019Q3

REPORT INFORMATION
  Report Type: Spontaneous
  Country: US (occurrence: US)
  Receive Date: 20190702
  Receipt Date: 20190702
  Transmission Date: 20191004
  Serious: No
  Sender: FDA-Public Use
  Company Number: US-TEVA-2019-US-1067896

PATIENT
  Age: 85 Year
  Sex: Female

DRUGS (12)
  1. ALLOPURINOL. [Concomitant]
     Active Substance: ALLOPURINOL
  2. POTASSIUM [Concomitant]
     Active Substance: POTASSIUM
  3. SYNRIBO [Suspect]
     Active Substance: OMACETAXINE MEPESUCCINATE
     Indication: CHRONIC MYELOID LEUKAEMIA
     Dosage: DOSE 2.2MG/0.63ML FOR 5 DAYS
     Route: 065
     Dates: start: 20190524
  4. CLARITIN [Concomitant]
     Active Substance: LORATADINE
  5. METOPROLOL. [Concomitant]
     Active Substance: METOPROLOL
  6. DIGOX [Concomitant]
     Active Substance: DIGOXIN
  7. LEVOTHYROXINE. [Concomitant]
     Active Substance: LEVOTHYROXINE
  8. B 100 COMPLEX [Concomitant]
  9. ELIQUIS [Concomitant]
     Active Substance: APIXABAN
  10. VITAMIN D3 [Concomitant]
     Active Substance: CHOLECALCIFEROL
  11. PRESERVISION [Concomitant]
     Active Substance: MINERALS\VITAMINS
  12. FUROSEMIDE. [Concomitant]
     Active Substance: FUROSEMIDE

REACTIONS (1)
  - Blood count abnormal [Unknown]
